FAERS Safety Report 16788114 (Version 2)
Quarter: 2019Q4

REPORT INFORMATION
  Report Type: Report from Study
  Country: US (occurrence: US)
  Receive Date: 20190909
  Receipt Date: 20191017
  Transmission Date: 20200122
  Serious: No
  Sender: FDA-Public Use
  Company Number: US-ALEXION PHARMACEUTICALS INC.-A201913363

PATIENT
  Sex: Female

DRUGS (1)
  1. SOLIRIS [Suspect]
     Active Substance: ECULIZUMAB
     Indication: PRODUCT USED FOR UNKNOWN INDICATION
     Route: 065

REACTIONS (9)
  - Viral infection [Unknown]
  - Menstruation irregular [Unknown]
  - Nausea [Unknown]
  - Upper respiratory tract infection [Unknown]
  - Cyst [Unknown]
  - Gingivitis [Unknown]
  - Menorrhagia [Unknown]
  - Tooth disorder [Unknown]
  - Dysuria [Unknown]
